FAERS Safety Report 12355949 (Version 1)
Quarter: 2016Q2

REPORT INFORMATION
  Report Type: Report from Study
  Country: US (occurrence: US)
  Receive Date: 20160511
  Receipt Date: 20160511
  Transmission Date: 20160815
  Serious: Yes (Hospitalization)
  Sender: FDA-Public Use
  Company Number: US-ACTELION-A-NJ2016-135657

PATIENT
  Age: 70 Year
  Sex: Female

DRUGS (2)
  1. COUMADIN [Concomitant]
     Active Substance: WARFARIN SODIUM
  2. TRACLEER [Suspect]
     Active Substance: BOSENTAN
     Indication: PULMONARY ARTERIAL HYPERTENSION
     Dosage: UNK
     Route: 048
     Dates: start: 20150523

REACTIONS (5)
  - Pain [Recovering/Resolving]
  - Dyspnoea [Unknown]
  - Limb injury [Recovering/Resolving]
  - Bronchitis [Unknown]
  - Asthenia [Recovering/Resolving]

NARRATIVE: CASE EVENT DATE: 20160326
